FAERS Safety Report 6348358-0 (Version None)
Quarter: 2009Q3

REPORT INFORMATION
  Report Type: 
  Country: None (occurrence: None)
  Receive Date: 20090908
  Receipt Date: 20090824
  Transmission Date: 20100115
  Serious: Yes (Hospitalization)
  Sender: FDA-Public Use
  Company Number: 2009BM000186

PATIENT
  Age: 24 Month
  Sex: Female
  Weight: 10.8 kg

DRUGS (2)
  1. KUVAN [Suspect]
     Indication: PHENYLKETONURIA
     Dosage: 200 MG;QD;PO ; 100 MG;QD;PO
     Route: 048
     Dates: start: 20090126, end: 20090101
  2. KUVAN [Suspect]
     Indication: PHENYLKETONURIA
     Dosage: 200 MG;QD;PO ; 100 MG;QD;PO
     Route: 048
     Dates: start: 20090101

REACTIONS (2)
  - STAPHYLOCOCCAL INFECTION [None]
  - SUBCUTANEOUS ABSCESS [None]
